FAERS Safety Report 4938679-8 (Version None)
Quarter: 2006Q1

REPORT INFORMATION
  Report Type: 
  Country: None (occurrence: None)
  Receive Date: 20060309
  Receipt Date: 20060301
  Transmission Date: 20060701
  Serious: Yes (Hospitalization)
  Sender: FDA-Public Use
  Company Number: PHBS2006EE03296

PATIENT
  Age: 51 Year
  Sex: Female

DRUGS (4)
  1. LESCOL XL [Suspect]
     Indication: HYPERCHOLESTEROLAEMIA
     Dosage: 80 MG/DAY
     Route: 048
     Dates: start: 20051001, end: 20060123
  2. L-THYROXIN [Concomitant]
  3. ATENOLOL [Concomitant]
  4. LACIPIL [Concomitant]

REACTIONS (2)
  - HEPATITIS B [None]
  - TRANSAMINASES INCREASED [None]
